FAERS Safety Report 14299471 (Version 1)
Quarter: 2017Q4

REPORT INFORMATION
  Report Type: Spontaneous
  Country: TW (occurrence: TW)
  Receive Date: 20171219
  Receipt Date: 20171219
  Transmission Date: 20180321
  Serious: Yes (Hospitalization)
  Sender: FDA-Public Use
  Company Number: TW-VISTAPHARM, INC.-VER201709-000557

PATIENT
  Age: 56 Year
  Sex: Female

DRUGS (3)
  1. METOCLOPRAMIDE. [Suspect]
     Active Substance: METOCLOPRAMIDE
     Indication: VOMITING
     Route: 048
     Dates: start: 20040422
  2. METOCLOPRAMIDE. [Suspect]
     Active Substance: METOCLOPRAMIDE
     Indication: NAUSEA
     Route: 048
     Dates: start: 20031121
  3. CEPHALOSPORIN [Concomitant]
     Active Substance: UNSPECIFIED INGREDIENT
     Indication: PERITONITIS PNEUMOCOCCAL
     Route: 042

REACTIONS (4)
  - Central nervous system lesion [Unknown]
  - Dyskinesia [Recovering/Resolving]
  - Parkinsonism [Recovering/Resolving]
  - Gait disturbance [Recovering/Resolving]
